FAERS Safety Report 5714262-1 (Version None)
Quarter: 2008Q2

REPORT INFORMATION
  Report Type: 
  Country: None (occurrence: None)
  Receive Date: 20080422
  Receipt Date: 20080422
  Transmission Date: 20081010
  Serious: Yes (Hospitalization)
  Sender: FDA-Public Use
  Company Number: None

PATIENT
  Age: 61 Year
  Sex: Male
  Weight: 114.31 kg

DRUGS (2)
  1. ENOXAPARIN SODIUM [Suspect]
     Indication: AORTIC VALVE REPLACEMENT
     Dosage: 150 MG EVERY DAY SQ
     Route: 058
     Dates: start: 20070715, end: 20070716
  2. ENOXAPARIN SODIUM [Suspect]
     Indication: ATRIAL FIBRILLATION
     Dosage: 150 MG EVERY DAY SQ
     Route: 058
     Dates: start: 20070715, end: 20070716

REACTIONS (5)
  - ARTHRALGIA [None]
  - ARTHROPATHY [None]
  - COAGULOPATHY [None]
  - HAEMARTHROSIS [None]
  - OEDEMA PERIPHERAL [None]
